FAERS Safety Report 17934055 (Version 1)
Quarter: 2020Q2

REPORT INFORMATION
  Report Type: Spontaneous
  Country: US (occurrence: US)
  Receive Date: 20200623
  Receipt Date: 20200623
  Transmission Date: 20200714
  Serious: No
  Sender: FDA-Public Use
  Company Number: US-AMGEN INC.-USASP2020098458

PATIENT
  Age: 35 Year
  Sex: Female

DRUGS (2)
  1. EXCEDRIN [CAFFEINE;PARACETAMOL] [Concomitant]
     Active Substance: ACETAMINOPHEN\CAFFEINE
     Indication: MIGRAINE
     Dosage: UNK
  2. AIMOVIG [Suspect]
     Active Substance: ERENUMAB-AOOE
     Indication: MIGRAINE PROPHYLAXIS
     Dosage: 140 MILLIGRAM, QMO
     Route: 065

REACTIONS (1)
  - Migraine [Not Recovered/Not Resolved]

NARRATIVE: CASE EVENT DATE: 20200503
